FAERS Safety Report 13563222 (Version 1)
Quarter: 2017Q2

REPORT INFORMATION
  Report Type: Spontaneous
  Country: IT (occurrence: IT)
  Receive Date: 20170519
  Receipt Date: 20170519
  Transmission Date: 20170830
  Serious: Yes (Death)
  Sender: FDA-Public Use
  Company Number: IT-B. BRAUN MEDICAL INC.-2020979

PATIENT
  Age: 69 Year
  Sex: Male
  Weight: 76 kg

DRUGS (6)
  1. SODIUM CHLORIDE. [Concomitant]
     Active Substance: SODIUM CHLORIDE
     Route: 042
     Dates: start: 20161224, end: 20161225
  2. HUMULIN (INSULIN) [Concomitant]
  3. POTASSIUM CHLORIDE FOR INJECTION CONCENTRATE USP 0264-1940-20 [Suspect]
     Active Substance: POTASSIUM CHLORIDE
     Route: 042
     Dates: start: 20161224, end: 20161225
  4. CALCIUM GLUCONATE. [Concomitant]
     Active Substance: CALCIUM GLUCONATE
  5. 8.4% SODIUM BICARBONATE [Concomitant]
  6. 10% GLUCOSE [Concomitant]
     Active Substance: DEXTROSE

REACTIONS (5)
  - Death [None]
  - Arrhythmia [Fatal]
  - Cardiac arrest [Fatal]
  - Drug prescribing error [Fatal]
  - Hyperkalaemia [Fatal]

NARRATIVE: CASE EVENT DATE: 20161224
